FAERS Safety Report 6883133-X (Version None)
Quarter: 2010Q3

REPORT INFORMATION
  Report Type: 
  Country: None (occurrence: None)
  Receive Date: 20100727
  Receipt Date: 20100713
  Transmission Date: 20110219
  Serious: Yes (Death, Hospitalization)
  Sender: FDA-Public Use
  Company Number: AUR-APL-2010-01787

PATIENT
  Age: 97 Year
  Sex: Female

DRUGS (10)
  1. CITALOPRAM [Suspect]
     Indication: DEPRESSION
     Dosage: 10MG, ORAL
     Route: 048
     Dates: start: 20100512, end: 20100517
  2. ADCAL-D3 [Concomitant]
  3. ASPIRIN [Concomitant]
  4. ATORVASTATIN CALCIUM [Concomitant]
  5. CANDESARTAN 8MG [Concomitant]
  6. CARVEDILOL [Concomitant]
  7. FUROSEMIDE [Concomitant]
  8. NULYTELY [Concomitant]
  9. OMEPRAZOLE [Concomitant]
  10. TRAZODONE HCL [Concomitant]

REACTIONS (2)
  - HYPONATRAEMIA [None]
  - MULTI-ORGAN FAILURE [None]
